FAERS Safety Report 11530205 (Version 1)
Quarter: 2015Q3

REPORT INFORMATION
  Report Type: Report from Study
  Country: CA (occurrence: CA)
  Receive Date: 20150921
  Receipt Date: 20150921
  Transmission Date: 20151125
  Serious: Yes (Hospitalization)
  Sender: FDA-Public Use
  Company Number: PHHY2014CA091823

PATIENT
  Sex: Female

DRUGS (1)
  1. SANDOSTATIN LAR DEPOT [Suspect]
     Active Substance: OCTREOTIDE ACETATE
     Indication: DIARRHOEA
     Dosage: 30 MG, QMO, ONCE A MONTH
     Route: 030
     Dates: start: 20130619

REACTIONS (3)
  - Off label use [Unknown]
  - Sepsis [Recovered/Resolved]
  - Urinary tract infection [Unknown]
